FAERS Safety Report 9800042 (Version 1)
Quarter: 2014Q1

REPORT INFORMATION
  Report Type: Spontaneous
  Country: US (occurrence: US)
  Receive Date: 20140106
  Receipt Date: 20140106
  Transmission Date: 20141002
  Serious: No
  Sender: FDA-Public Use
  Company Number: US-GILEAD-2010-0032081

PATIENT
  Sex: Female
  Weight: 106 kg

DRUGS (20)
  1. LETAIRIS [Suspect]
     Indication: PULMONARY ARTERIAL HYPERTENSION
     Route: 048
     Dates: start: 20081213, end: 20100915
  2. LETAIRIS [Suspect]
     Route: 048
     Dates: start: 20081111, end: 20081213
  3. LETAIRIS [Suspect]
     Route: 048
     Dates: start: 20080521, end: 20080923
  4. LETAIRIS [Suspect]
     Route: 048
     Dates: start: 20071016, end: 20080521
  5. NIFEREX [Suspect]
  6. TRACLEER [Concomitant]
     Indication: PULMONARY ARTERIAL HYPERTENSION
     Dates: start: 20080923, end: 20081111
  7. LASIX [Concomitant]
  8. POTASSIUM [Concomitant]
  9. ZAROXOLYN [Concomitant]
  10. VYTORIN [Concomitant]
  11. SYMBICORT [Concomitant]
  12. DUONEB [Concomitant]
  13. ALBUTEROL [Concomitant]
  14. PROTONIX [Concomitant]
  15. DETROL [Concomitant]
  16. CARAFATE [Concomitant]
  17. METHADONE [Concomitant]
  18. AMERGE [Concomitant]
  19. LYRICA [Concomitant]
  20. LORAZEPAM [Concomitant]

REACTIONS (4)
  - Hyperhidrosis [Recovering/Resolving]
  - Pruritus [Recovering/Resolving]
  - Chills [Recovering/Resolving]
  - Headache [Recovering/Resolving]
